FAERS Safety Report 5841844-9 (Version None)
Quarter: 2008Q3

REPORT INFORMATION
  Report Type: 
  Country: None (occurrence: None)
  Receive Date: 20080812
  Receipt Date: 20080807
  Transmission Date: 20090109
  Serious: Yes (Hospitalization)
  Sender: FDA-Public Use
  Company Number: B0532806A

PATIENT
  Age: 4 Year
  Sex: Female

DRUGS (3)
  1. AUGMENTIN [Suspect]
     Indication: OTITIS MEDIA ACUTE
     Dosage: 80MGKD PER DAY
     Route: 048
     Dates: start: 20080627, end: 20080701
  2. DALSY [Suspect]
     Indication: OTITIS MEDIA ACUTE
     Dosage: 7ML FOUR TIMES PER DAY
     Route: 048
     Dates: start: 20080627, end: 20080701
  3. PARACETAMOL [Suspect]
     Indication: OTITIS MEDIA ACUTE
     Route: 048
     Dates: start: 20080627, end: 20080701

REACTIONS (1)
  - UPPER GASTROINTESTINAL HAEMORRHAGE [None]
